FAERS Safety Report 24074687 (Version 1)
Quarter: 2024Q3

REPORT INFORMATION
  Report Type: Spontaneous
  Country: US (occurrence: US)
  Receive Date: 20240710
  Receipt Date: 20240710
  Transmission Date: 20241017
  Serious: Yes (Other)
  Sender: PIERRE FABRE MEDICAMENT
  Company Number: US-PFM-2023-06955

PATIENT
  Sex: Female
  Weight: 7.46 kg

DRUGS (1)
  1. HEMANGEOL [Suspect]
     Active Substance: PROPRANOLOL HYDROCHLORIDE
     Indication: Haemangioma
     Dosage: 3 ML, BID (2/DAY)
     Route: 048
     Dates: start: 20231204

REACTIONS (4)
  - Blood glucose decreased [Unknown]
  - Sleep terror [Unknown]
  - Irritability [Unknown]
  - Intentional product misuse [Unknown]
